FAERS Safety Report 15624548 (Version 1)
Quarter: 2018Q4

REPORT INFORMATION
  Report Type: Spontaneous
  Country: US (occurrence: US)
  Receive Date: 20181116
  Receipt Date: 20181116
  Transmission Date: 20190205
  Serious: Yes (Hospitalization, Other)
  Sender: FDA-Public Use
  Company Number: US-009507513-1811USA005879

PATIENT
  Age: 10 Year
  Sex: Male

DRUGS (1)
  1. DULERA [Suspect]
     Active Substance: FORMOTEROL FUMARATE DIHYDRATE\MOMETASONE FUROATE
     Indication: ASTHMA
     Dosage: 94 PUFFS, ONCE

REACTIONS (11)
  - Hypokalaemia [Recovered/Resolved]
  - Tachycardia [Unknown]
  - Intentional overdose [Unknown]
  - Hypotension [Recovered/Resolved]
  - Hyperglycaemia [Unknown]
  - Agitation [Unknown]
  - Hyperhidrosis [Unknown]
  - Tachypnoea [Unknown]
  - Electrolyte imbalance [Unknown]
  - Product administration error [Unknown]
  - Electrocardiogram QT prolonged [Recovered/Resolved]
